FAERS Safety Report 6640374-4 (Version None)
Quarter: 2010Q1

REPORT INFORMATION
  Report Type: 
  Country: None (occurrence: None)
  Receive Date: 20100303
  Receipt Date: 20090213
  Transmission Date: 20100710
  Serious: Yes (Other)
  Sender: FDA-Public Use
  Company Number: 614460

PATIENT
  Age: 57 Year
  Sex: Female
  Weight: 72.5 kg

DRUGS (11)
  1. BONIVA [Suspect]
     Indication: OSTEOPOROSIS
     Dosage: 3 MG 1 PER 3 MONTH INTRAVENOUS
     Route: 042
     Dates: start: 20081001
  2. AVAPRO [Concomitant]
  3. LIPITOR [Concomitant]
  4. LEVOXYL [Concomitant]
  5. CYTOMEL [Concomitant]
  6. LEFLUNOMIDE [Concomitant]
  7. CELEXA [Concomitant]
  8. ENBREL [Concomitant]
  9. FOLIC ACID [Concomitant]
  10. UNITROL (PHENYLPROPANOLAMINE HYDROCHLORIDE) [Concomitant]
  11. FLONASE [Concomitant]

REACTIONS (10)
  - CONTUSION [None]
  - ERYTHEMA [None]
  - HYPOAESTHESIA [None]
  - INJECTION SITE EXTRAVASATION [None]
  - INJECTION SITE HAEMATOMA [None]
  - OEDEMA PERIPHERAL [None]
  - PAIN IN EXTREMITY [None]
  - PROCEDURAL COMPLICATION [None]
  - RASH [None]
  - SWELLING [None]
